FAERS Safety Report 8833965 (Version 2)
Quarter: 2012Q4

REPORT INFORMATION
  Report Type: 
  Country: US (occurrence: US)
  Receive Date: 20121010
  Receipt Date: 20121102
  Transmission Date: 20130627
  Serious: Yes (Hospitalization, Other)
  Sender: FDA-Public Use
  Company Number: US-ELI_LILLY_AND_COMPANY-US201210001078

PATIENT
  Age: 46 Year
  Sex: Male

DRUGS (4)
  1. ZYPREXA RELPREVV [Suspect]
     Indication: SCHIZOPHRENIA
     Dosage: 300 mg, 2/M
     Route: 030
  2. PROVERA [Concomitant]
     Indication: AGGRESSION
  3. HALDOL [Concomitant]
  4. ATIVAN [Concomitant]

REACTIONS (5)
  - Psychotic disorder [Not Recovered/Not Resolved]
  - Physical assault [Not Recovered/Not Resolved]
  - Aggression [Not Recovered/Not Resolved]
  - Agitation [Not Recovered/Not Resolved]
  - Confusional state [Not Recovered/Not Resolved]
